FAERS Safety Report 8824817 (Version 4)
Quarter: 2015Q1

REPORT INFORMATION
  Report Type: Report from Study
  Country: US (occurrence: US)
  Receive Date: 20121004
  Receipt Date: 20150321
  Transmission Date: 20150721
  Serious: Yes (Death)
  Sender: FDA-Public Use
  Company Number: US-ROCHE-1141533

PATIENT
  Sex: Male

DRUGS (1)
  1. XELODA [Suspect]
     Active Substance: CAPECITABINE
     Indication: CARCINOID TUMOUR OF THE SMALL BOWEL
     Dosage: TAKING 4 TABLETS 2 TIMES ADAY FOR 7 DAYS THEN OFF FOR 7 DAYS?28 TABLETS PER CYCLE
     Route: 048

REACTIONS (1)
  - Death [Fatal]
